FAERS Safety Report 6171035-6 (Version None)
Quarter: 2009Q2

REPORT INFORMATION
  Report Type: 
  Country: None (occurrence: None)
  Receive Date: 20090429
  Receipt Date: 20090422
  Transmission Date: 20091009
  Serious: Yes (Hospitalization)
  Sender: FDA-Public Use
  Company Number: SE-JNJFOC-20090405279

PATIENT
  Sex: Female

DRUGS (7)
  1. CONCERTA [Suspect]
     Indication: ATTENTION DEFICIT/HYPERACTIVITY DISORDER
     Route: 048
  2. BRICANYL [Concomitant]
     Route: 055
  3. SYMBICORT FORTE [Concomitant]
     Route: 055
  4. SIMVASTATIN [Concomitant]
  5. ZOPIKLON [Concomitant]
     Route: 065
  6. TROMBYL [Concomitant]
     Route: 048
  7. NAPROXEN [Concomitant]
     Route: 065

REACTIONS (1)
  - TRANSIENT ISCHAEMIC ATTACK [None]
